FAERS Safety Report 13794298 (Version 1)
Quarter: 2017Q3

REPORT INFORMATION
  Report Type: Spontaneous
  Country: US (occurrence: US)
  Receive Date: 20170726
  Receipt Date: 20170726
  Transmission Date: 20171127
  Serious: No
  Sender: FDA-Public Use
  Company Number: US-IPSEN BIOPHARMACEUTICALS, INC.-2017-05018

PATIENT
  Age: 75 Year
  Sex: Female

DRUGS (12)
  1. XERMELO [Suspect]
     Active Substance: TELOTRISTAT ETHYL
     Indication: CARCINOID SYNDROME
     Route: 048
     Dates: start: 20170411
  2. CARVEDILOL. [Concomitant]
     Active Substance: CARVEDILOL
  3. PEPCID [Concomitant]
     Active Substance: FAMOTIDINE
  4. OMEPRAZOLE. [Concomitant]
     Active Substance: OMEPRAZOLE
  5. QUESTRAN [Concomitant]
     Active Substance: CHOLESTYRAMINE
  6. CALCIUM CARBONATE-VITAMIN D [Concomitant]
     Active Substance: CALCIUM CARBONATE\VITAMIN D
  7. MAGNESIUM OXIDE. [Concomitant]
     Active Substance: MAGNESIUM OXIDE
  8. TIROSINT [Concomitant]
     Active Substance: LEVOTHYROXINE SODIUM
  9. SOMATULINE LAR [Suspect]
     Active Substance: LANREOTIDE ACETATE
     Indication: PRODUCT USED FOR UNKNOWN INDICATION
     Dosage: NOT REPORTED
     Route: 065
  10. KLOR-CON M10 [Concomitant]
     Active Substance: POTASSIUM CHLORIDE
  11. LISINOPRIL. [Concomitant]
     Active Substance: LISINOPRIL
  12. LASIX [Concomitant]
     Active Substance: FUROSEMIDE

REACTIONS (2)
  - Flushing [Not Recovered/Not Resolved]
  - Abdominal pain [Not Recovered/Not Resolved]

NARRATIVE: CASE EVENT DATE: 201704
